FAERS Safety Report 11739820 (Version 1)
Quarter: 2015Q4

REPORT INFORMATION
  Report Type: Spontaneous
  Country: GB (occurrence: GB)
  Receive Date: 20151113
  Receipt Date: 20151113
  Transmission Date: 20160304
  Serious: Yes (Other)
  Sender: FDA-Public Use
  Company Number: GB-TEVA-606912ACC

PATIENT
  Age: 88 Year
  Sex: Female
  Weight: 75 kg

DRUGS (12)
  1. DORZOLAMIDE HYDROCHLORIDE. [Concomitant]
     Active Substance: DORZOLAMIDE HYDROCHLORIDE
     Dosage: 2 GTT DAILY;
     Route: 050
     Dates: start: 20150320
  2. LEVOTHYROXINE. [Concomitant]
     Active Substance: LEVOTHYROXINE
     Dosage: 1 DOSAGE FORMS DAILY; EACH MORNING
     Dates: start: 20150320
  3. DOUBLEBASE [Concomitant]
     Active Substance: ISOPROPYL MYRISTATE\PARAFFIN
     Dosage: USE AS NEEDED
     Dates: start: 20150923, end: 20151021
  4. BIMATOPROST. [Concomitant]
     Active Substance: BIMATOPROST
     Dosage: 1 GTT DAILY;
     Route: 050
     Dates: start: 20150320
  5. HYLO-FORTE [Concomitant]
     Dosage: 4 GTT DAILY; EACH EYE
     Route: 050
     Dates: start: 20150923
  6. LANSOPRAZOLE. [Concomitant]
     Active Substance: LANSOPRAZOLE
     Dosage: 1 DOSAGE FORMS DAILY;
     Dates: start: 20150320, end: 20151021
  7. CO-AMILOFRUSE [Suspect]
     Active Substance: AMILORIDE\FUROSEMIDE
     Dates: start: 20150923
  8. ALLOPURINOL. [Concomitant]
     Active Substance: ALLOPURINOL
     Indication: GOUT
     Dates: start: 20150320
  9. CANDESARTAN [Concomitant]
     Active Substance: CANDESARTAN
     Dosage: 1 DOSAGE FORMS DAILY;
     Dates: start: 20150923, end: 20151021
  10. PARACETAMOL [Concomitant]
     Active Substance: ACETAMINOPHEN
     Indication: PAIN
     Dosage: TWO FOUR TIMES DAILY AS REQUIRED
     Dates: start: 20150923, end: 20151021
  11. E45 [Concomitant]
     Active Substance: LANOLIN\LIGHT MINERAL OIL\PARAFFIN
     Dosage: APPLY AS NEEDED
     Dates: start: 20150320, end: 20150804
  12. ZEROCREAM [Concomitant]
     Dosage: APPLY AS NEEDED
     Dates: start: 20150804

REACTIONS (2)
  - Gastrointestinal disorder [Unknown]
  - Abdominal pain [Recovered/Resolved]

NARRATIVE: CASE EVENT DATE: 20151022
